FAERS Safety Report 4847559-8 (Version None)
Quarter: 2005Q4

REPORT INFORMATION
  Report Type: 
  Country: None (occurrence: None)
  Receive Date: 20051205
  Receipt Date: 20051128
  Transmission Date: 20060501
  Serious: Yes (Life-Threatening, Hospitalization)
  Sender: FDA-Public Use
  Company Number: 2005RR-01240

PATIENT
  Age: 45 Year
  Sex: Female
  Weight: 75 kg

DRUGS (5)
  1. IBUPROFEN [Suspect]
     Indication: BACK PAIN
     Dosage: SEE IMAGE
     Route: 048
     Dates: start: 20020101, end: 20051019
  2. CODEINE PHOSPHATE (CODEINE PHOSPHATE) [Concomitant]
  3. PARACETAMOL (PARACETAMOL) [Concomitant]
  4. GTN-S [Concomitant]
  5. EVENING PRIMROSE OIL TABLET [Concomitant]

REACTIONS (3)
  - ANGINA PECTORIS [None]
  - MICROCYTIC ANAEMIA [None]
  - OEDEMA PERIPHERAL [None]
